FAERS Safety Report 25952137 (Version 1)
Quarter: 2025Q4

REPORT INFORMATION
  Report Type: Spontaneous
  Country: US (occurrence: None)
  Receive Date: 20251022
  Receipt Date: 20251022
  Transmission Date: 20260117
  Serious: Yes (Hospitalization)
  Sender: FDA-CTU
  Company Number: None

PATIENT
  Age: 37 Year
  Sex: Male

DRUGS (1)
  1. WEZLANA [Suspect]
     Active Substance: USTEKINUMAB-AUUB
     Indication: Crohn^s disease
     Dosage: FREQUENCY : AS DIRECTED;? WEEK O, WEEK 4 AND THEN EVNY 8 WEEKS11?

REACTIONS (4)
  - Off label use [None]
  - Therapy interrupted [None]
  - Insurance issue [None]
  - Obstruction [None]
